FAERS Safety Report 8357867-4 (Version None)
Quarter: 2012Q2

REPORT INFORMATION
  Report Type: 
  Country: None (occurrence: None)
  Receive Date: 20120514
  Receipt Date: 20120430
  Transmission Date: 20120825
  Serious: Yes (Death)
  Sender: FDA-Public Use
  Company Number: PHHY2012TW040623

PATIENT

DRUGS (3)
  1. BASILIXIMAB [Concomitant]
     Indication: HEART TRANSPLANT
  2. NEORAL [Suspect]
     Indication: HEART TRANSPLANT
     Dosage: 10 MG/KG/DAY
  3. CORTICOSTEROIDS [Concomitant]
     Indication: HEART TRANSPLANT
     Dosage: UNK UKN, UNK

REACTIONS (3)
  - MENINGITIS VIRAL [None]
  - CYTOMEGALOVIRUS INFECTION [None]
  - RESPIRATORY FAILURE [None]
